FAERS Safety Report 4635108-9 (Version None)
Quarter: 2005Q2

REPORT INFORMATION
  Report Type: 
  Country: None (occurrence: None)
  Receive Date: 20050414
  Receipt Date: 20050404
  Transmission Date: 20051028
  Serious: Yes (Life-Threatening)
  Sender: FDA-Public Use
  Company Number: IT-BRISTOL-MYERS SQUIBB COMPANY-12928503

PATIENT
  Age: 71 Year
  Sex: Male

DRUGS (2)
  1. HOLOXAN [Suspect]
     Route: 042
     Dates: start: 20050308, end: 20050308
  2. EPIRUBICIN [Suspect]
     Route: 042

REACTIONS (4)
  - HAEMOLYSIS [None]
  - LIVER FUNCTION TEST ABNORMAL [None]
  - PYREXIA [None]
  - THROMBOCYTOPENIA [None]
